FAERS Safety Report 19713929 (Version 3)
Quarter: 2021Q4

REPORT INFORMATION
  Report Type: Report from Study
  Country: US (occurrence: US)
  Receive Date: 20210818
  Receipt Date: 20211001
  Transmission Date: 20220304
  Serious: No
  Sender: FDA-Public Use
  Company Number: US-AMGEN-USASL2021124321

PATIENT
  Age: 56 Year
  Sex: Male

DRUGS (1)
  1. NEULASTA [Suspect]
     Active Substance: PEGFILGRASTIM
     Indication: Bone cancer metastatic
     Dosage: UNK, Q3WK
     Route: 065

REACTIONS (4)
  - Fatigue [Unknown]
  - Unintentional medical device removal [Unknown]
  - Device adhesion issue [Unknown]
  - Application site pain [Unknown]

NARRATIVE: CASE EVENT DATE: 20210810
